FAERS Safety Report 18201776 (Version 2)
Quarter: 2020Q3

REPORT INFORMATION
  Report Type: Spontaneous
  Country: IT (occurrence: IT)
  Receive Date: 20200827
  Receipt Date: 20200903
  Transmission Date: 20201103
  Serious: Yes (Life-Threatening, Hospitalization, Other)
  Sender: FDA-Public Use
  Company Number: IT-AUROBINDO-AUR-APL-2020-044386

PATIENT
  Age: 29 Year
  Sex: Female

DRUGS (29)
  1. LEVETIRACETAM. [Suspect]
     Active Substance: LEVETIRACETAM
     Indication: MOVEMENT DISORDER
  2. TOPIRAMATE. [Suspect]
     Active Substance: TOPIRAMATE
     Indication: SEIZURE
     Dosage: UNK, FULL DOSAGE
     Route: 065
  3. TOPIRAMATE. [Suspect]
     Active Substance: TOPIRAMATE
     Indication: MOVEMENT DISORDER
  4. PHENOBARBITAL. [Suspect]
     Active Substance: PHENOBARBITAL
     Indication: SEIZURE
     Dosage: UNK
     Route: 065
  5. IMMUNGLOBULIN [Suspect]
     Active Substance: HUMAN IMMUNOGLOBULIN G
     Indication: ENCEPHALITIS AUTOIMMUNE
     Dosage: 0.2 G/KG ONCE A DAY
     Route: 042
  6. METHYLPREDNISOLONE. [Suspect]
     Active Substance: METHYLPREDNISOLONE
     Indication: ENCEPHALITIS AUTOIMMUNE
     Dosage: 1 GRAM, ONCE A DAY
     Route: 040
  7. PERAMPANEL [Suspect]
     Active Substance: PERAMPANEL
     Indication: MOVEMENT DISORDER
  8. RITUXIMAB. [Suspect]
     Active Substance: RITUXIMAB
     Indication: ENCEPHALITIS AUTOIMMUNE
  9. CYCLOPHOSPHAMIDE. [Suspect]
     Active Substance: CYCLOPHOSPHAMIDE
     Indication: IMMUNOSUPPRESSION
     Dosage: 800 MILLIGRAM/SQ. METER
     Route: 042
  10. PHENYTOIN. [Suspect]
     Active Substance: PHENYTOIN
     Indication: MOVEMENT DISORDER
  11. PERAMPANEL [Suspect]
     Active Substance: PERAMPANEL
     Indication: SEIZURE
     Dosage: UNK FULL DOSAGE
     Route: 065
  12. TETRABENAZINE. [Suspect]
     Active Substance: TETRABENAZINE
     Indication: MOVEMENT DISORDER
     Dosage: 25 MILLIGRAM, 3 TIMES A DAY
     Route: 065
  13. TETRABENAZINE. [Suspect]
     Active Substance: TETRABENAZINE
     Indication: ENCEPHALITIS AUTOIMMUNE
  14. KETAMINE [Concomitant]
     Active Substance: KETAMINE
     Indication: SEDATION
     Dosage: UNK
     Route: 065
  15. METHYLPREDNISOLONE. [Suspect]
     Active Substance: METHYLPREDNISOLONE
     Indication: IMMUNOSUPPRESSION
  16. LEVETIRACETAM. [Suspect]
     Active Substance: LEVETIRACETAM
     Indication: SEIZURE
     Dosage: UNK FULL DOSAGE
     Route: 065
  17. CYCLOPHOSPHAMIDE. [Suspect]
     Active Substance: CYCLOPHOSPHAMIDE
     Indication: ENCEPHALITIS AUTOIMMUNE
  18. PHENOBARBITAL. [Suspect]
     Active Substance: PHENOBARBITAL
     Indication: MOVEMENT DISORDER
  19. PROPOFOL. [Concomitant]
     Active Substance: PROPOFOL
     Indication: SEDATION
     Dosage: UNK
     Route: 065
  20. MIDAZOLAM. [Concomitant]
     Active Substance: MIDAZOLAM
     Indication: SEDATION
     Dosage: UNK
     Route: 065
  21. LACOSAMIDE. [Suspect]
     Active Substance: LACOSAMIDE
     Indication: SEIZURE
     Dosage: UNK FULL DOSAGE
     Route: 065
  22. LACOSAMIDE. [Suspect]
     Active Substance: LACOSAMIDE
     Indication: MOVEMENT DISORDER
  23. PHENYTOIN. [Suspect]
     Active Substance: PHENYTOIN
     Indication: SEIZURE
     Dosage: UNK FULL DOSAGE
     Route: 065
  24. RITUXIMAB. [Suspect]
     Active Substance: RITUXIMAB
     Indication: IMMUNOSUPPRESSION
     Dosage: 1 GRAM (TWO DOSES WERE ADMINISTERED)
     Route: 042
  25. TRAMADOL. [Concomitant]
     Active Substance: TRAMADOL
     Indication: DYSKINESIA
     Dosage: 100 MILLIGRAM, FOUR TIMES/DAY
     Route: 065
  26. BORTEZOMIB. [Suspect]
     Active Substance: BORTEZOMIB
     Indication: ENCEPHALITIS AUTOIMMUNE
     Dosage: 1.3 MILLIGRAM/SQ. METER (ON DAYS 1, 4, 8 AND 11)
     Route: 042
  27. CLOBAZAM. [Suspect]
     Active Substance: CLOBAZAM
     Indication: SEIZURE
     Dosage: UNK, FULL DOSAGE
     Route: 065
  28. CLOBAZAM. [Suspect]
     Active Substance: CLOBAZAM
     Indication: MOVEMENT DISORDER
  29. IMMUNGLOBULIN [Suspect]
     Active Substance: HUMAN IMMUNOGLOBULIN G
     Dosage: REPEATED ADMINISTRATION AFTER INTUBATION; 0.2 G/KG/ DAY
     Route: 042

REACTIONS (2)
  - Drug ineffective [Unknown]
  - Off label use [Unknown]
